FAERS Safety Report 23126441 (Version 1)
Quarter: 2023Q4

REPORT INFORMATION
  Report Type: Spontaneous
  Country: US (occurrence: US)
  Receive Date: 20231030
  Receipt Date: 20231030
  Transmission Date: 20240110
  Serious: No
  Sender: FDA-Public Use
  Company Number: US-009507513-2310USA008636

PATIENT
  Age: 47 Year
  Sex: Female

DRUGS (3)
  1. TEMODAR [Suspect]
     Active Substance: TEMOZOLOMIDE
     Indication: Spinal cord neoplasm
     Dosage: 6 CYCLES AT150 MILLIGRAM/SQ. METER FOR 5 DAYS EVERY MONTH
     Route: 048
  2. TEMODAR [Suspect]
     Active Substance: TEMOZOLOMIDE
     Dosage: 6 ADDITIONAL CYCLES
     Route: 048
  3. BEVACIZUMAB [Concomitant]
     Active Substance: BEVACIZUMAB
     Indication: Spinal cord neoplasm

REACTIONS (1)
  - Off label use [Unknown]
